FAERS Safety Report 13924020 (Version 1)
Quarter: 2017Q3

REPORT INFORMATION
  Report Type: Spontaneous
  Country: US (occurrence: None)
  Receive Date: 20170830
  Receipt Date: 20170830
  Transmission Date: 20171127
  Serious: Yes (Death, Hospitalization)
  Sender: FDA-Public Use
  Company Number: None

PATIENT
  Age: 73 Year
  Sex: Male
  Weight: 77.4 kg

DRUGS (2)
  1. LENALIDOMIDE (CC-5013) (703813) [Suspect]
     Active Substance: LENALIDOMIDE
     Dates: end: 20170712
  2. VELCADE [Suspect]
     Active Substance: BORTEZOMIB
     Dates: end: 20160202

REACTIONS (3)
  - Metastatic neoplasm [None]
  - Subarachnoid haemorrhage [None]
  - Pulmonary mass [None]

NARRATIVE: CASE EVENT DATE: 20170713
